FAERS Safety Report 23248457 (Version 2)
Quarter: 2024Q3

REPORT INFORMATION
  Report Type: Report from Study
  Country: US (occurrence: US)
  Receive Date: 20231201
  Receipt Date: 20240911
  Transmission Date: 20241016
  Serious: Yes (Other)
  Sender: ABBVIE
  Company Number: US-ABBVIE-5516787

PATIENT
  Sex: Female
  Weight: 73.936 kg

DRUGS (2)
  1. HUMIRA [Suspect]
     Active Substance: ADALIMUMAB
     Indication: Ankylosing spondylitis
     Dosage: END DATE- 2023
     Route: 058
     Dates: start: 20230608
  2. HUMIRA [Suspect]
     Active Substance: ADALIMUMAB
     Route: 058
     Dates: start: 2023

REACTIONS (3)
  - Loss of consciousness [Unknown]
  - Hypotension [Unknown]
  - Ankylosing spondylitis [Not Recovered/Not Resolved]

NARRATIVE: CASE EVENT DATE: 20230101
